FAERS Safety Report 10172368 (Version 1)
Quarter: 2014Q2

REPORT INFORMATION
  Report Type: Spontaneous
  Country: US (occurrence: US)
  Receive Date: 20140515
  Receipt Date: 20140515
  Transmission Date: 20141212
  Serious: No
  Sender: FDA-Public Use
  Company Number: US-ASTRAZENECA-2013SE89665

PATIENT
  Sex: Female
  Weight: 68 kg

DRUGS (3)
  1. ZOLADEX [Suspect]
     Indication: METASTASES TO BONE
     Dosage: MONTH
     Route: 058
     Dates: end: 20131124
  2. FASLODEX [Suspect]
     Route: 030
     Dates: end: 20131124
  3. ZOLEDRONIC ACID [Concomitant]
     Indication: BONE CANCER

REACTIONS (7)
  - Nausea [Not Recovered/Not Resolved]
  - Vomiting [Not Recovered/Not Resolved]
  - Headache [Not Recovered/Not Resolved]
  - Hypophagia [Not Recovered/Not Resolved]
  - Malaise [Not Recovered/Not Resolved]
  - Bone pain [Not Recovered/Not Resolved]
  - Fatigue [Not Recovered/Not Resolved]
